FAERS Safety Report 5684984-X (Version None)
Quarter: 2008Q1

REPORT INFORMATION
  Report Type: 
  Country: None (occurrence: None)
  Receive Date: 20080328
  Receipt Date: 20080317
  Transmission Date: 20080703
  Serious: Yes (Death, Hospitalization)
  Sender: FDA-Public Use
  Company Number: GB-ROCHE-540477

PATIENT
  Age: 71 Year
  Sex: Female

DRUGS (16)
  1. CAPECITABINE [Suspect]
     Route: 048
     Dates: start: 20071016, end: 20071127
  2. CAPECITABINE [Suspect]
     Route: 048
     Dates: end: 20071127
  3. BEVACIZUMAB [Suspect]
     Route: 042
     Dates: start: 20071016, end: 20071127
  4. ATENOLOL [Concomitant]
  5. DEXAMETHASONE TAB [Concomitant]
  6. DEXAMETHASONE TAB [Concomitant]
     Dates: start: 20071102, end: 20071127
  7. ZOPICLONE [Concomitant]
  8. ZOPICLONE [Concomitant]
     Dates: start: 20071101, end: 20071127
  9. DESLORATADINE [Concomitant]
  10. VENLAFAXINE HCL [Concomitant]
  11. BENZODIAZEPINE [Concomitant]
     Dosage: REPORTED AS BZD.
  12. SENNA [Concomitant]
     Dosage: TDD : X2.
     Dates: end: 20071127
  13. CIPROFLOXACIN [Concomitant]
     Dates: start: 20071102, end: 20071112
  14. OXYGEN [Concomitant]
     Dates: start: 20071102, end: 20071127
  15. 1 CONCOMITANT DRUG [Concomitant]
     Dosage: DRUG NAME REPORTED AS : NEOCWARITIN.
     Dates: end: 20071127
  16. BENDROFLUAZIDE [Concomitant]
     Dates: end: 20071127

REACTIONS (4)
  - DYSPNOEA [None]
  - LOWER RESPIRATORY TRACT INFECTION [None]
  - NEUTROPENIA [None]
  - NEUTROPENIC SEPSIS [None]
